FAERS Safety Report 19064006 (Version 2)
Quarter: 2021Q2

REPORT INFORMATION
  Report Type: Spontaneous
  Country: US (occurrence: US)
  Receive Date: 20210326
  Receipt Date: 20210616
  Transmission Date: 20210717
  Serious: Yes (Hospitalization)
  Sender: FDA-Public Use
  Company Number: US-EMD SERONO-9227272

PATIENT
  Age: 82 Year
  Sex: Male

DRUGS (2)
  1. ACETAMINOPHEN. [Concomitant]
     Active Substance: ACETAMINOPHEN
     Indication: PREMEDICATION
     Dates: start: 2021
  2. BAVENCIO [Suspect]
     Active Substance: AVELUMAB
     Indication: TRANSITIONAL CELL CARCINOMA
     Route: 042
     Dates: start: 2021

REACTIONS (3)
  - Dizziness [Recovered/Resolved]
  - Pyrexia [Unknown]
  - Chills [Unknown]

NARRATIVE: CASE EVENT DATE: 2021
